FAERS Safety Report 8732337 (Version 2)
Quarter: 2012Q4

REPORT INFORMATION
  Report Type: 
  Country: US (occurrence: US)
  Receive Date: 20120820
  Receipt Date: 20121008
  Transmission Date: 20130627
  Serious: Yes (Death, Life-Threatening, Hospitalization, Disabling)
  Sender: FDA-Public Use
  Company Number: US-GLAXOSMITHKLINE-A0990065A

PATIENT
  Age: 77 Year
  Sex: Male

DRUGS (1)
  1. VOTRIENT [Suspect]
     Indication: COLON CANCER
     Dosage: 200MG Per day
     Route: 048
     Dates: start: 20120322

REACTIONS (4)
  - Colon cancer [Fatal]
  - Diverticulitis [Unknown]
  - Large intestine perforation [Fatal]
  - Sepsis [Fatal]
